FAERS Safety Report 7575443-8 (Version None)
Quarter: 2011Q2

REPORT INFORMATION
  Report Type: 
  Country: None (occurrence: None)
  Receive Date: 20110627
  Receipt Date: 20110621
  Transmission Date: 20111010
  Serious: Yes (Life-Threatening, Hospitalization)
  Sender: FDA-Public Use
  Company Number: JP-CELGENEUS-087-21880-11062526

PATIENT
  Sex: Male

DRUGS (17)
  1. ACETAMINOPHEN [Concomitant]
     Indication: ILL-DEFINED DISORDER
     Dosage: 1800 MILLIGRAM
     Route: 048
     Dates: start: 20101217
  2. ZOMETA [Concomitant]
     Indication: ILL-DEFINED DISORDER
     Dosage: 4 MILLIGRAM
     Route: 041
     Dates: start: 20110124, end: 20110214
  3. LASIX [Concomitant]
     Indication: ILL-DEFINED DISORDER
     Dosage: 40 MILLIGRAM
     Route: 048
     Dates: start: 20101217
  4. DIFLUCAN [Concomitant]
     Indication: PROPHYLAXIS
     Dosage: 100 MILLIGRAM
     Route: 048
     Dates: start: 20101217
  5. ASPIRIN [Concomitant]
     Indication: PROPHYLAXIS
     Dosage: 100 MILLIGRAM
     Route: 048
     Dates: start: 20101217
  6. DEXAMETHASONE [Suspect]
     Indication: MULTIPLE MYELOMA
     Dosage: 20 MILLIGRAM
     Route: 048
     Dates: start: 20101217, end: 20101217
  7. ZOSYN [Concomitant]
     Indication: PROPHYLAXIS
     Dosage: 9 GRAM
     Route: 041
     Dates: start: 20110218, end: 20110221
  8. CEFOPERAZONE SODIUM [Concomitant]
     Indication: PROPHYLAXIS
     Dosage: 2 GRAM
     Route: 041
     Dates: start: 20110222, end: 20110307
  9. DEXAMETHASONE [Suspect]
     Dosage: 20 MILLIGRAM
     Route: 048
     Dates: start: 20110113, end: 20110113
  10. ARICEPT [Concomitant]
     Indication: DEMENTIA
     Dosage: 5 MILLIGRAM
     Route: 048
     Dates: start: 20101217
  11. FENTOS TAPE [Concomitant]
     Indication: ILL-DEFINED DISORDER
     Dosage: 2 MILLIGRAM
     Route: 062
     Dates: start: 20101217
  12. ALDACTONE [Concomitant]
     Indication: ILL-DEFINED DISORDER
     Dosage: 50 MILLIGRAM
     Route: 048
     Dates: start: 20101217
  13. DISOPYRAMIDE [Concomitant]
     Indication: VENTRICULAR TACHYCARDIA
     Dosage: 150 MILLIGRAM
     Route: 048
     Dates: start: 20101217
  14. ELCITONIN [Concomitant]
     Indication: ILL-DEFINED DISORDER
     Dosage: 40 UNITS
     Route: 041
     Dates: start: 20110127, end: 20110307
  15. RABEPRAZOLE SODIUM [Concomitant]
     Indication: PROPHYLAXIS
     Dosage: 10 MILLIGRAM
     Route: 048
     Dates: start: 20101217
  16. REVLIMID [Suspect]
     Indication: MULTIPLE MYELOMA
     Dosage: 10 MILLIGRAM
     Route: 048
     Dates: start: 20101217, end: 20101227
  17. REVLIMID [Suspect]
     Dosage: 10 MILLIGRAM
     Route: 048
     Dates: start: 20110113, end: 20110201

REACTIONS (4)
  - NEUTROPENIA [None]
  - PNEUMONIA [None]
  - LEUKOPENIA [None]
  - SEPSIS [None]
